FAERS Safety Report 16424401 (Version 2)
Quarter: 2019Q3

REPORT INFORMATION
  Report Type: Report from Study
  Country: None (occurrence: US)
  Receive Date: 20190613
  Receipt Date: 20190905
  Transmission Date: 20191004
  Serious: Yes (Other)
  Sender: FDA-Public Use
  Company Number: US-ABBVIE-19K-163-2813493-00

PATIENT
  Sex: Female

DRUGS (2)
  1. HUMIRA [Suspect]
     Active Substance: ADALIMUMAB
     Indication: COLITIS ULCERATIVE
     Route: 058
  2. REMICADE [Suspect]
     Active Substance: INFLIXIMAB
     Indication: PRODUCT USED FOR UNKNOWN INDICATION
     Route: 065

REACTIONS (7)
  - Abdominal hernia [Not Recovered/Not Resolved]
  - Adverse drug reaction [Recovered/Resolved]
  - Colitis ulcerative [Not Recovered/Not Resolved]
  - Pyoderma [Unknown]
  - Colostomy [Unknown]
  - Fistula [Not Recovered/Not Resolved]
  - Fistula [Recovered/Resolved]
